FAERS Safety Report 8996758 (Version 1)
Quarter: 2012Q4

REPORT INFORMATION
  Report Type: Spontaneous
  Country: US (occurrence: None)
  Receive Date: 20121228
  Receipt Date: 20121228
  Transmission Date: 20130627
  Serious: Yes (Other)
  Sender: FDA-Public Use
  Company Number: None

PATIENT
  Age: 66 Year
  Sex: Female
  Weight: 58.97 kg

DRUGS (1)
  1. PREDNISONE [Suspect]
     Indication: COPD
     Dosage: 10/ or 20mg  downward sequence
     Route: 048

REACTIONS (1)
  - Pain in extremity [None]
